FAERS Safety Report 14265404 (Version 13)
Quarter: 2025Q4

REPORT INFORMATION
  Report Type: Spontaneous
  Country: EU (occurrence: EU)
  Receive Date: 20171208
  Receipt Date: 20251107
  Transmission Date: 20260117
  Serious: Yes (Hospitalization)
  Sender: BAUSCH AND LOMB
  Company Number: EU-BRISTOL-MYERS SQUIBB COMPANY-12703161

PATIENT
  Sex: Female
  Weight: 1.97 kg

DRUGS (5)
  1. DICLOFENAC [Suspect]
     Active Substance: DICLOFENAC
     Indication: Sciatica
     Dosage: FROM THE 2ND TO THE 3RD MONTH DURING MOTHER^S PREGNANCY
     Route: 064
  2. ACETAMINOPHEN [Suspect]
     Active Substance: ACETAMINOPHEN
     Indication: Sciatica
     Dosage: 8-9 G/DAY FROM 2ND TO 3RD MONTH OF GESTATION; MATERNAL DOSE: 1 DF, QD (1 MICROG/LITRE)
     Route: 064
  3. ACETAMINOPHEN [Suspect]
     Active Substance: ACETAMINOPHEN
     Dosage: 1-2 G/DAY (FROM 4TH MONTH TO DELIVERY)
     Route: 064
  4. NIMESULIDE [Suspect]
     Active Substance: NIMESULIDE
     Indication: Sciatica
     Dosage: 100-200MG/DAY FROM 3 MONTHS PRIOR TO CONCEPTION TO 1 MONTH AFTER CONCEPTION. MATERNAL DOSE 1 MCG/L
     Route: 064
  5. NIMESULIDE [Suspect]
     Active Substance: NIMESULIDE
     Dosage: 100 MG/DAY FROM THE 4TH MONTH TO DELIVERY
     Route: 064

REACTIONS (2)
  - Renal failure neonatal [Recovered/Resolved]
  - Foetal exposure during pregnancy [Unknown]
